FAERS Safety Report 9062086 (Version 1)
Quarter: 2013Q1

REPORT INFORMATION
  Report Type: Report from Study
  Country: CA (occurrence: CA)
  Receive Date: 20130128
  Receipt Date: 20130128
  Transmission Date: 20140127
  Serious: Yes (Other)
  Sender: FDA-Public Use
  Company Number: CA-JNJFOC-20130110382

PATIENT
  Age: 71 Year
  Sex: Female
  Weight: 66.8 kg

DRUGS (4)
  1. REMICADE [Suspect]
     Indication: CROHN^S DISEASE
     Route: 042
     Dates: start: 20111205
  2. REMICADE [Suspect]
     Indication: CROHN^S DISEASE
     Route: 042
     Dates: start: 20130115
  3. MTX [Concomitant]
     Route: 065
  4. PENTASA [Concomitant]
     Route: 048

REACTIONS (2)
  - Nephrolithiasis [Unknown]
  - Bronchitis [Recovered/Resolved]
